FAERS Safety Report 5954529-5 (Version None)
Quarter: 2008Q4

REPORT INFORMATION
  Report Type: 
  Country: None (occurrence: None)
  Receive Date: 20081117
  Receipt Date: 20081105
  Transmission Date: 20090506
  Serious: Yes (Death)
  Sender: FDA-Public Use
  Company Number: US-AMGEN-US313940

PATIENT
  Sex: Female
  Weight: 63.6 kg

DRUGS (12)
  1. NPLATE [Suspect]
     Indication: IDIOPATHIC THROMBOCYTOPENIC PURPURA
     Route: 058
     Dates: start: 20080909, end: 20080909
  2. ARANESP [Concomitant]
  3. LEVAQUIN [Concomitant]
  4. ROXANOL [Concomitant]
  5. TESSALON [Concomitant]
  6. VALTREX [Concomitant]
  7. PREDNISONE TAB [Concomitant]
  8. FLONASE [Concomitant]
  9. VICODIN [Concomitant]
  10. TAMOXIFEN [Concomitant]
     Dates: start: 20080911
  11. CORTICOSTEROIDS [Concomitant]
  12. GEMZAR [Concomitant]
     Dates: start: 20080825

REACTIONS (1)
  - OVARIAN CANCER [None]
